FAERS Safety Report 11852754 (Version 1)
Quarter: 2015Q4

REPORT INFORMATION
  Report Type: Spontaneous
  Country: RU (occurrence: RU)
  Receive Date: 20151218
  Receipt Date: 20151218
  Transmission Date: 20160305
  Serious: Yes (Hospitalization, Other)
  Sender: FDA-Public Use
  Company Number: RU-BAYER-2015-458193

PATIENT
  Age: 30 Year
  Sex: Female

DRUGS (1)
  1. YARINA [Suspect]
     Active Substance: DROSPIRENONE\ETHINYL ESTRADIOL
     Indication: CONTRACEPTION
     Dosage: 1 DF, QD
     Route: 048

REACTIONS (9)
  - Pneumonia [Not Recovered/Not Resolved]
  - Pericardial effusion [None]
  - Bleeding time abnormal [None]
  - Pleural effusion [None]
  - Pain in extremity [None]
  - Dyspnoea [None]
  - Haemoptysis [None]
  - Pelvic venous thrombosis [None]
  - Neck pain [None]

NARRATIVE: CASE EVENT DATE: 201510
